FAERS Safety Report 24968892 (Version 2)
Quarter: 2025Q1

REPORT INFORMATION
  Report Type: Report from Study
  Country: US (occurrence: US)
  Receive Date: 20250214
  Receipt Date: 20250219
  Transmission Date: 20250408
  Serious: Yes (Hospitalization, Other)
  Sender: ROCHE
  Company Number: US-ROCHE-10000200672

PATIENT
  Age: 51 Year
  Sex: Female

DRUGS (1)
  1. OCREVUS [Suspect]
     Active Substance: OCRELIZUMAB
     Indication: Multiple sclerosis
     Route: 058
     Dates: end: 20180914

REACTIONS (17)
  - Vascular device infection [Unknown]
  - Facial pain [Unknown]
  - Muscle spasms [Unknown]
  - Neck pain [Unknown]
  - Multiple sclerosis [Unknown]
  - Asthenia [Unknown]
  - Pain [Unknown]
  - Diplopia [Unknown]
  - Fatigue [Unknown]
  - Headache [Unknown]
  - Eye pain [Unknown]
  - Fall [Unknown]
  - Arthralgia [Unknown]
  - Lhermitte^s sign [Unknown]
  - Muscle spasticity [Unknown]
  - Malaise [Unknown]
  - Product prescribing error [Unknown]
